FAERS Safety Report 6027765-X (Version None)
Quarter: 2009Q1

REPORT INFORMATION
  Report Type: 
  Country: None (occurrence: None)
  Receive Date: 20090105
  Receipt Date: 20081225
  Transmission Date: 20090719
  Serious: Yes (Life-Threatening)
  Sender: FDA-Public Use
  Company Number: JP-BAXTER-2008BH014277

PATIENT
  Age: 7 Year
  Sex: Male

DRUGS (7)
  1. ENDOXAN BAXTER [Suspect]
     Indication: MEDULLOBLASTOMA
     Route: 042
     Dates: start: 20001101, end: 20010701
  2. LASTET [Suspect]
     Indication: MEDULLOBLASTOMA
     Route: 042
     Dates: start: 20001101, end: 20010701
  3. VINCRISTINE SULFATE [Suspect]
     Indication: MEDULLOBLASTOMA
     Route: 042
     Dates: start: 20001101, end: 20010701
  4. RANDA [Suspect]
     Indication: MEDULLOBLASTOMA
     Route: 042
     Dates: start: 20001101, end: 20010701
  5. METHOTREXATE [Suspect]
     Indication: MEDULLOBLASTOMA
     Route: 065
     Dates: start: 20001101, end: 20010701
  6. THIOTEPA [Suspect]
     Indication: MEDULLOBLASTOMA
     Route: 042
     Dates: start: 20001101, end: 20010701
  7. MELPHALAN [Suspect]
     Indication: MEDULLOBLASTOMA
     Route: 042
     Dates: start: 20001101, end: 20010701

REACTIONS (1)
  - BONE SARCOMA [None]
